FAERS Safety Report 21419906 (Version 1)
Quarter: 2022Q4

REPORT INFORMATION
  Report Type: Other
  Country: PT (occurrence: PT)
  Receive Date: 20221006
  Receipt Date: 20221006
  Transmission Date: 20230113
  Serious: Yes (Other)
  Sender: FDA-Public Use
  Company Number: PT-CELLTRION INC.-2022PT016061

PATIENT

DRUGS (2)
  1. HERZUMA [Suspect]
     Active Substance: TRASTUZUMAB-PKRB
     Indication: Product used for unknown indication
     Dosage: 420 MG
     Route: 042
     Dates: start: 20220909, end: 20220909
  2. PERJETA [Suspect]
     Active Substance: PERTUZUMAB
     Indication: Product used for unknown indication
     Dosage: 420 MG
     Route: 042
     Dates: start: 20220909, end: 20220909

REACTIONS (2)
  - Tremor [Recovered/Resolved]
  - Pain in extremity [Recovered/Resolved]

NARRATIVE: CASE EVENT DATE: 20220909
